FAERS Safety Report 20445140 (Version 6)
Quarter: 2022Q3

REPORT INFORMATION
  Report Type: Report from Study
  Country: US (occurrence: US)
  Receive Date: 20220208
  Receipt Date: 20220921
  Transmission Date: 20221026
  Serious: No
  Sender: FDA-Public Use
  Company Number: US-NOVARTISTESTPH-NVSC2022US026488

PATIENT
  Sex: Male

DRUGS (1)
  1. KESIMPTA [Suspect]
     Active Substance: OFATUMUMAB
     Indication: Product used for unknown indication
     Dosage: UNK
     Route: 065

REACTIONS (7)
  - Sleep disorder [Unknown]
  - Body temperature abnormal [Unknown]
  - Gait disturbance [Unknown]
  - Fall [Unknown]
  - Pain [Unknown]
  - Asthenia [Recovering/Resolving]
  - Chills [Unknown]
